FAERS Safety Report 21719297 (Version 1)
Quarter: 2022Q4

REPORT INFORMATION
  Report Type: Report from Study
  Country: GB (occurrence: None)
  Receive Date: 20221213
  Receipt Date: 20221213
  Transmission Date: 20230113
  Serious: Yes (Hospitalization, Other)
  Sender: FDA-Public Use
  Company Number: GB-Merck Healthcare KGaA-9370864

PATIENT
  Sex: Male

DRUGS (1)
  1. REBIF [Suspect]
     Active Substance: INTERFERON BETA-1A
     Indication: Multiple sclerosis
     Dosage: REBIF PRE-FILLED SYRINGE.
     Route: 058
     Dates: start: 2017

REACTIONS (4)
  - Lip and/or oral cavity cancer [Unknown]
  - Osteomyelitis [Unknown]
  - Infection [Unknown]
  - Product dose omission issue [Unknown]
